FAERS Safety Report 8891295 (Version 2)
Quarter: 2012Q4

REPORT INFORMATION
  Report Type: 
  Country: JP (occurrence: JP)
  Receive Date: 20121107
  Receipt Date: 20121126
  Transmission Date: 20130627
  Serious: Yes (Other)
  Sender: FDA-Public Use
  Company Number: JP-ASTRAZENECA-2012SE83414

PATIENT
  Age: 47 Year
  Sex: Female

DRUGS (6)
  1. SYMBICORT TURBUHALER [Suspect]
     Indication: ASTHMA
     Dosage: 4 DF UNKNOWN
     Route: 055
  2. GENINAX [Suspect]
     Route: 048
     Dates: start: 20121002, end: 20121002
  3. CELESTAMINE [Concomitant]
     Route: 048
  4. XYZAL [Concomitant]
     Route: 048
  5. KIPRES [Concomitant]
     Route: 048
  6. FLAVERIC [Concomitant]
     Route: 048

REACTIONS (1)
  - Toxic skin eruption [Recovered/Resolved]
